FAERS Safety Report 6892299-7 (Version None)
Quarter: 2010Q3

REPORT INFORMATION
  Report Type: 
  Country: None (occurrence: None)
  Receive Date: 20100731
  Receipt Date: 20080321
  Transmission Date: 20110219
  Serious: No
  Sender: FDA-Public Use
  Company Number: US-PFIZER INC-2008027105

PATIENT
  Sex: Female
  Weight: 102.3 kg

DRUGS (3)
  1. GABAPENTIN [Suspect]
     Indication: BACK PAIN
     Route: 048
  2. GABAPENTIN [Suspect]
     Indication: PAIN IN EXTREMITY
  3. DEPAKOTE [Suspect]
     Indication: BIPOLAR DISORDER
     Route: 048
     Dates: start: 20070301

REACTIONS (2)
  - DEPRESSION [None]
  - WEIGHT INCREASED [None]
